FAERS Safety Report 4403737-3 (Version None)
Quarter: 2004Q3

REPORT INFORMATION
  Report Type: 
  Country: None (occurrence: None)
  Receive Date: 20040719
  Receipt Date: 20040702
  Transmission Date: 20050211
  Serious: Yes (Other)
  Sender: FDA-Public Use
  Company Number: MC200400046

PATIENT
  Age: 70 Year
  Sex: Male
  Weight: 83.1 kg

DRUGS (16)
  1. ANGIOMAX [Suspect]
     Indication: ANTICOAGULANT THERAPY
     Dosage: SEE IMAGE
     Route: 040
     Dates: start: 20040610, end: 20040610
  2. ANGIOMAX [Suspect]
     Indication: STENT PLACEMENT
     Dosage: SEE IMAGE
     Route: 040
     Dates: start: 20040610, end: 20040610
  3. ANGIOMAX [Suspect]
     Indication: ANTICOAGULANT THERAPY
     Dosage: SEE IMAGE
     Route: 040
     Dates: start: 20040610, end: 20040610
  4. ANGIOMAX [Suspect]
     Indication: STENT PLACEMENT
     Dosage: SEE IMAGE
     Route: 040
     Dates: start: 20040610, end: 20040610
  5. ANGIOMAX [Suspect]
     Indication: ANTICOAGULANT THERAPY
     Dosage: SEE IMAGE
     Route: 040
     Dates: start: 20040610, end: 20040610
  6. ANGIOMAX [Suspect]
     Indication: STENT PLACEMENT
     Dosage: SEE IMAGE
     Route: 040
     Dates: start: 20040610, end: 20040610
  7. GLUCOVANCE [Concomitant]
  8. NORVASC/DEN/ (AMLODIPINE BESILATE) [Concomitant]
  9. FISH OIL (FISH OIL) [Concomitant]
  10. PLAVIX [Concomitant]
  11. ZOCOR [Concomitant]
  12. TOPROL-XL [Concomitant]
  13. ACETYLSALICYLIC ACID SRT [Concomitant]
  14. MAGNESIUM (MAGNESIUM) [Concomitant]
  15. NEXIUM [Concomitant]
  16. HYDROCHLORZIDE (HYDROCHLOROTHIAZIDE) [Concomitant]

REACTIONS (4)
  - CATHETER RELATED COMPLICATION [None]
  - COAGULATION TIME SHORTENED [None]
  - CORONARY ARTERY EMBOLISM [None]
  - ELECTROCARDIOGRAM ST SEGMENT ELEVATION [None]
